FAERS Safety Report 16630817 (Version 3)
Quarter: 2019Q3

REPORT INFORMATION
  Report Type: Report from Study
  Country: TR (occurrence: TR)
  Receive Date: 20190725
  Receipt Date: 20190909
  Transmission Date: 20191004
  Serious: Yes (Hospitalization, Other)
  Sender: FDA-Public Use
  Company Number: TR-ALEXION-A201911039

PATIENT
  Sex: Male
  Weight: 40 kg

DRUGS (2)
  1. SOLIRIS [Suspect]
     Active Substance: ECULIZUMAB
     Dosage: 900 MG, Q2W
     Route: 065
  2. SOLIRIS [Suspect]
     Active Substance: ECULIZUMAB
     Indication: ATYPICAL HAEMOLYTIC URAEMIC SYNDROME
     Dosage: UNK
     Route: 042

REACTIONS (14)
  - Tachycardia [Not Recovered/Not Resolved]
  - Oropharyngeal pain [Not Recovered/Not Resolved]
  - Laboratory test abnormal [Unknown]
  - Heart rate increased [Unknown]
  - Stomatitis [Not Recovered/Not Resolved]
  - Peritonsillar abscess [Unknown]
  - Pyrexia [Not Recovered/Not Resolved]
  - Glossodynia [Not Recovered/Not Resolved]
  - Decreased immune responsiveness [Unknown]
  - Blood potassium decreased [Not Recovered/Not Resolved]
  - Nasal polyps [Not Recovered/Not Resolved]
  - Pharyngitis [Unknown]
  - C-reactive protein increased [Unknown]
  - Blood creatinine increased [Unknown]
